FAERS Safety Report 7683797-7 (Version None)
Quarter: 2011Q3

REPORT INFORMATION
  Report Type: 
  Country: None (occurrence: None)
  Receive Date: 20110815
  Receipt Date: 20110805
  Transmission Date: 20111222
  Serious: Yes (Other)
  Sender: FDA-Public Use
  Company Number: CA-US-EMD SERONO, INC.-7067399

PATIENT
  Sex: Female

DRUGS (2)
  1. REBIF [Suspect]
     Indication: RELAPSING-REMITTING MULTIPLE SCLEROSIS
     Route: 058
     Dates: start: 20110524
  2. ADVIL LIQUI-GELS [Concomitant]
     Indication: HEADACHE
     Route: 048

REACTIONS (7)
  - PAIN IN EXTREMITY [None]
  - INJECTION SITE HAEMATOMA [None]
  - MUSCULAR WEAKNESS [None]
  - INJECTION SITE PAIN [None]
  - INFLUENZA LIKE ILLNESS [None]
  - INJECTION SITE ERYTHEMA [None]
  - OPTIC NEURITIS [None]
